FAERS Safety Report 4327766-3 (Version None)
Quarter: 2004Q1

REPORT INFORMATION
  Report Type: 
  Country: None (occurrence: None)
  Receive Date: 20040325
  Receipt Date: 20040312
  Transmission Date: 20041129
  Serious: Yes (Life-Threatening, Hospitalization, Other)
  Sender: FDA-Public Use
  Company Number: US-JNJFOC-20040303226

PATIENT
  Age: 55 Year
  Sex: Female

DRUGS (2)
  1. DURAGESIC [Suspect]
     Indication: PAIN
     Dosage: 75 UG/HR, 1 IN 72 HOUR, TRANSDERMAL
     Route: 062
     Dates: start: 20030101, end: 20031001
  2. OXYCONTIN [Suspect]
     Indication: PAIN
     Dosage: 80 MG, 1 IN 1 DAY

REACTIONS (1)
  - DEPRESSED LEVEL OF CONSCIOUSNESS [None]
